FAERS Safety Report 6250721-3 (Version None)
Quarter: 2009Q2

REPORT INFORMATION
  Report Type: 
  Country: None (occurrence: None)
  Receive Date: 20090630
  Receipt Date: 20080801
  Transmission Date: 20091009
  Serious: No
  Sender: FDA-Public Use
  Company Number: US-ABBOTT-08P-163-0468053-00

PATIENT
  Sex: Female

DRUGS (5)
  1. ZEMPLAR [Suspect]
     Indication: HYPERPARATHYROIDISM
     Route: 048
     Dates: start: 20071201, end: 20080601
  2. ZEMPLAR [Suspect]
     Route: 048
     Dates: start: 20080601
  3. DIOVAN HCT [Concomitant]
     Indication: BLOOD PRESSURE
  4. DILTIAZEM [Concomitant]
     Indication: BLOOD PRESSURE
  5. HYDRALAZINE HCL [Concomitant]
     Indication: BLOOD PRESSURE

REACTIONS (4)
  - BONE PAIN [None]
  - HIP FRACTURE [None]
  - MYALGIA [None]
  - OSTEOARTHRITIS [None]
